FAERS Safety Report 8640196 (Version 2)
Quarter: 2013Q2

REPORT INFORMATION
  Report Type: Report from Study
  Country: US (occurrence: US)
  Receive Date: 20120628
  Receipt Date: 20130627
  Transmission Date: 20140414
  Serious: Yes (Other)
  Sender: FDA-Public Use
  Company Number: US-MYLANLABS-2012S1000615

PATIENT
  Age: 59 Year
  Sex: Female

DRUGS (7)
  1. CLOZAPINE TABLETS [Suspect]
     Indication: SCHIZOPHRENIA
     Route: 048
     Dates: end: 20120103
  2. COGENTIN [Concomitant]
  3. DEPAKOTE [Concomitant]
     Dosage: USING DEPAKOTE, 500MG X 1 Q.AM. AND 500MG X 2 Q. HS.
  4. GLIPIZIDE [Concomitant]
  5. LISINOPRIL [Concomitant]
  6. ATIVAN [Concomitant]
  7. METOPROLOL [Concomitant]

REACTIONS (3)
  - Granulocytopenia [Not Recovered/Not Resolved]
  - Leukopenia [Recovered/Resolved]
  - Platelet count decreased [Recovered/Resolved]
